FAERS Safety Report 8187857-6 (Version None)
Quarter: 2012Q1

REPORT INFORMATION
  Report Type: 
  Country: None (occurrence: None)
  Receive Date: 20120306
  Receipt Date: 20120301
  Transmission Date: 20120608
  Serious: Yes (Hospitalization, Other)
  Sender: FDA-Public Use
  Company Number: US-PFIZER INC-2011219894

PATIENT
  Sex: Female

DRUGS (22)
  1. CHANTIX [Suspect]
     Indication: SMOKING CESSATION THERAPY
     Dosage: STARTER PAKS AND CONTINUING PAKS
     Dates: start: 20070601, end: 20070801
  2. OXYCODONE HCL AND ACETAMINOPHEN [Concomitant]
     Indication: PAIN
     Dosage: UNK
     Dates: start: 20050101, end: 20110101
  3. TRAMADOL [Concomitant]
     Indication: PAIN
     Dosage: UNK
     Dates: start: 20070101
  4. CLONAZEPAM [Concomitant]
     Indication: ANXIETY
     Dosage: UNK
     Dates: start: 19980101
  5. ACETAMINOPHEN AND HYDROCODONE BITARTRATE [Concomitant]
     Indication: PAIN
     Dosage: UNK
     Dates: start: 20040101, end: 20100101
  6. CITALOPRAM [Concomitant]
     Indication: DEPRESSION
     Dosage: UNK
     Dates: start: 20080101
  7. TRAMADOL [Concomitant]
     Indication: MIGRAINE
  8. GABAPENTIN [Concomitant]
     Indication: NEURALGIA
     Dosage: UNK
     Dates: start: 19980101
  9. LEXAPRO [Concomitant]
     Indication: DEPRESSION
  10. CHANTIX [Suspect]
     Dosage: STARTER PAKS AND CONTINUING PAKS
     Dates: start: 20081101, end: 20100201
  11. BUTALBITAL ACETAMINOPHEN AND CAFFEINE [Concomitant]
     Indication: HEADACHE
     Dosage: UNK
     Dates: start: 20050101, end: 20110101
  12. AMOXICILLIN [Concomitant]
     Indication: ANTIBIOTIC THERAPY
     Dosage: UNK
     Dates: start: 20080101, end: 20100101
  13. LEXAPRO [Concomitant]
     Indication: ANXIETY
     Dosage: UNK
     Dates: start: 20040101, end: 20100101
  14. LORAZEPAM [Concomitant]
     Indication: ANXIETY
     Dosage: UNK
     Dates: start: 20040101, end: 20110101
  15. WARFARIN SODIUM [Concomitant]
     Indication: ANTICOAGULANT THERAPY
     Dosage: UNK
     Dates: start: 20060101, end: 20100101
  16. OXYCODONE HYDROCHLORIDE [Concomitant]
     Indication: PAIN
     Dosage: UNK
     Dates: start: 20060101, end: 20100101
  17. CEPHALEXIN [Concomitant]
     Indication: ANTIBIOTIC THERAPY
     Dosage: UNK
     Dates: start: 20080101, end: 20110101
  18. ZYPREXA [Concomitant]
     Indication: DEPRESSION
     Dosage: UNK
     Dates: start: 19940101
  19. TRAZODONE [Concomitant]
     Indication: INSOMNIA
     Dosage: UNK
     Dates: start: 19940101
  20. OXYCONTIN [Concomitant]
     Indication: PAIN
     Dosage: UNK
     Dates: start: 20040101, end: 20100101
  21. PREDNISONE [Concomitant]
     Indication: INJECTION
     Dosage: UNK
     Dates: start: 20070101, end: 20110101
  22. HYDROMORPHONE [Concomitant]
     Indication: MIGRAINE
     Dosage: UNK
     Dates: start: 20080101, end: 20100101

REACTIONS (7)
  - GAIT DISTURBANCE [None]
  - DYSKINESIA [None]
  - LOSS OF CONSCIOUSNESS [None]
  - FALL [None]
  - FEMUR FRACTURE [None]
  - DEVICE DAMAGE [None]
  - PAIN IN EXTREMITY [None]
